FAERS Safety Report 8057317-1 (Version None)
Quarter: 2012Q1

REPORT INFORMATION
  Report Type: 
  Country: None (occurrence: None)
  Receive Date: 20120119
  Receipt Date: 20120109
  Transmission Date: 20120608
  Serious: Yes (Hospitalization)
  Sender: FDA-Public Use
  Company Number: PHHO2012IN000761

PATIENT
  Sex: Male
  Weight: 82 kg

DRUGS (16)
  1. BLINDED NO TREATMENT RECEIVED [Suspect]
     Indication: MYOPIA
     Dosage: DOUBLE BLINDED
     Dates: start: 20110415, end: 20110415
  2. BLINDED NO TREATMENT RECEIVED [Suspect]
     Dosage: DOUBLE BLINDED
     Dates: start: 20110519, end: 20110519
  3. ISOSORBIDE DINITRATE [Concomitant]
     Indication: MYOCARDIAL ISCHAEMIA
     Dosage: 3 TIMES DAY
     Route: 048
     Dates: start: 19910502
  4. TELMISARTAN [Concomitant]
     Indication: HYPERTENSION
     Dosage: ONCE A DAY
     Route: 048
     Dates: start: 20110201
  5. ALPRAZOLAM [Concomitant]
     Indication: ANXIETY
     Dosage: ONCE A DAY
     Route: 048
     Dates: start: 19910502
  6. BLINDED VISUDYNE [Suspect]
     Dosage: DOUBLE BLINDED
     Dates: start: 20110416, end: 20110416
  7. BLINDED LUCENTIS [Suspect]
     Indication: MYOPIA
     Dosage: DOUBLE BLINDED
     Dates: start: 20110415, end: 20110415
  8. BLINDED LUCENTIS [Suspect]
     Dosage: DOUBLE BLINDED
     Dates: start: 20110416, end: 20110416
  9. BLINDED LUCENTIS [Suspect]
     Dosage: DOUBLE BLINDED
     Dates: start: 20110519, end: 20110519
  10. BLINDED VISUDYNE [Suspect]
     Dosage: DOUBLE BLINDED
     Dates: start: 20110519, end: 20110519
  11. LEVOCETIRIZINE DIHYDROCHLORIDE [Concomitant]
     Indication: PRURITUS
     Dosage: ONCE A DAY
     Route: 048
     Dates: start: 20110201
  12. ACETYLSALICYLIC ACID SRT [Suspect]
     Indication: MYOCARDIAL ISCHAEMIA
     Dosage: UNK
     Route: 048
     Dates: start: 19910502
  13. METOPROLOL TARTRATE [Concomitant]
     Indication: HYPERTENSION
     Dosage: ONCE A DAY
     Route: 048
     Dates: start: 20110201
  14. ROSUVASTATIN [Concomitant]
     Indication: HYPERCHOLESTEROLAEMIA
     Dosage: ONCE A DAY
     Route: 048
     Dates: start: 20110201
  15. BLINDED VISUDYNE [Suspect]
     Indication: MYOPIA
     Dosage: DOUBLE BLINDED
     Dates: start: 20110415, end: 20110415
  16. BLINDED NO TREATMENT RECEIVED [Suspect]
     Dosage: DOUBLE BLINDED
     Dates: start: 20110416, end: 20110416

REACTIONS (1)
  - SUBDURAL HAEMATOMA [None]
